FAERS Safety Report 5987525-2 (Version None)
Quarter: 2008Q4

REPORT INFORMATION
  Report Type: 
  Country: None (occurrence: None)
  Receive Date: 20081209
  Receipt Date: 20081127
  Transmission Date: 20090506
  Serious: Yes (Other)
  Sender: FDA-Public Use
  Company Number: JP-PFIZER INC-2008150710

PATIENT

DRUGS (2)
  1. SOLANAX [Suspect]
     Dosage: 0.4 MG, 4X/DAY
     Route: 048
  2. ALL OTHER THERAPEUTIC PRODUCTS [Concomitant]

REACTIONS (1)
  - VISUAL ACUITY REDUCED [None]
